FAERS Safety Report 14804409 (Version 5)
Quarter: 2018Q3

REPORT INFORMATION
  Report Type: Spontaneous
  Country: GB (occurrence: GB)
  Receive Date: 20180425
  Receipt Date: 20180920
  Transmission Date: 20181010
  Serious: Yes (Life-Threatening, Hospitalization, Other)
  Sender: FDA-Public Use
  Company Number: GB-AUROBINDO-AUR-APL-2018-021470

PATIENT
  Age: 29 Year
  Sex: Female

DRUGS (16)
  1. HYDROCORTISONE. [Suspect]
     Active Substance: HYDROCORTISONE
     Indication: ASTHMA
     Dosage: 100 MILLIGRAM
     Route: 042
  2. EPINEPHRINE. [Suspect]
     Active Substance: EPINEPHRINE
     Indication: ASTHMA
     Dosage: DILUTED IN SMALL INCREMENTS
     Route: 065
  3. ATROVENT [Suspect]
     Active Substance: IPRATROPIUM BROMIDE
     Indication: ASTHMA
     Route: 065
  4. SEVOFLURANE. [Suspect]
     Active Substance: SEVOFLURANE
     Indication: ASTHMA
     Dosage: 8 %, UNK
     Route: 055
  5. MAGNESIUM SULFATE. [Suspect]
     Active Substance: MAGNESIUM SULFATE
     Route: 042
  6. MONTELUKAST [Suspect]
     Active Substance: MONTELUKAST SODIUM
     Indication: ASTHMA
     Dosage: UNK
     Route: 048
  7. SALBUTAMOL [Suspect]
     Active Substance: ALBUTEROL
     Indication: ASTHMA
     Dosage: FORM?INTRAVENOUS INFUSION
     Route: 042
  8. KETAMINE [Suspect]
     Active Substance: KETAMINE
     Indication: ASTHMA
     Dosage: UNK
     Route: 042
  9. PREDNISOLONE. [Concomitant]
     Active Substance: PREDNISOLONE
     Indication: ASTHMA
     Dosage: 30 MG, UNK
     Route: 048
  10. SALBUTAMOL [Suspect]
     Active Substance: ALBUTEROL
     Dosage: VIA NEBULIZATION
     Route: 065
  11. KETAMINE [Suspect]
     Active Substance: KETAMINE
     Dosage: FORM: INTRAVENOUS INFUSION ()
     Route: 042
  12. MAGNESIUM SULFATE. [Suspect]
     Active Substance: MAGNESIUM SULFATE
     Indication: ASTHMA
     Dosage: UNK ()
     Route: 065
  13. ALBUTEROL                          /00139501/ [Suspect]
     Active Substance: ALBUTEROL
     Indication: ASTHMA
     Dosage: UNK
     Route: 042
  14. THEOPHYLLINE [Concomitant]
     Active Substance: THEOPHYLLINE ANHYDROUS
     Indication: ASTHMA
     Dosage: UNK ()
     Route: 065
  15. SALBUTAMOL [Suspect]
     Active Substance: ALBUTEROL
     Dosage: 250 MICROGRAM
     Route: 042
  16. KETAMINE [Suspect]
     Active Substance: KETAMINE
     Dosage: INCREASED TO 45 MICROG/KG/MIN ()
     Route: 042

REACTIONS (19)
  - Lung hyperinflation [Recovering/Resolving]
  - Wheezing [Recovering/Resolving]
  - Blood bicarbonate decreased [Recovering/Resolving]
  - Dyspnoea [Recovering/Resolving]
  - Blood lactic acid increased [Recovering/Resolving]
  - Status asthmaticus [Recovered/Resolved]
  - Respiratory rate increased [Recovering/Resolving]
  - PO2 decreased [Recovering/Resolving]
  - PCO2 increased [Recovering/Resolving]
  - Acute respiratory failure [Recovered/Resolved]
  - Drug ineffective [Recovering/Resolving]
  - Blood pH decreased [Unknown]
  - Off label use [Unknown]
  - Cyanosis [Recovering/Resolving]
  - Respiratory acidosis [Recovering/Resolving]
  - Oxygen saturation decreased [Recovering/Resolving]
  - Bronchospasm [Recovering/Resolving]
  - Hypercapnia [Unknown]
  - Airway peak pressure increased [Recovering/Resolving]
